FAERS Safety Report 5941127-2 (Version None)
Quarter: 2008Q4

REPORT INFORMATION
  Report Type: 
  Country: None (occurrence: None)
  Receive Date: 20081104
  Receipt Date: 20081023
  Transmission Date: 20090506
  Serious: Yes (Hospitalization)
  Sender: FDA-Public Use
  Company Number: NL-PFIZER INC-2008090661

PATIENT
  Sex: Male

DRUGS (10)
  1. SU-011,248 [Suspect]
     Indication: HAEMANGIOPERICYTOMA
     Route: 048
     Dates: start: 20081002, end: 20081014
  2. IFOSFAMIDE [Suspect]
     Indication: HAEMANGIOPERICYTOMA
     Route: 042
     Dates: start: 20081002
  3. FENTANYL [Concomitant]
     Route: 061
  4. ACETAMINOPHEN [Concomitant]
     Route: 048
  5. SENNOSIDES [Concomitant]
  6. OXAZEPAM [Concomitant]
  7. OXYNORM [Concomitant]
  8. PANTOZOL [Concomitant]
     Route: 048
  9. LACTULOSE [Concomitant]
     Route: 048
  10. BISOPROLOL FUMARATE [Concomitant]
     Route: 048

REACTIONS (5)
  - ABDOMINAL PAIN [None]
  - GENERAL PHYSICAL HEALTH DETERIORATION [None]
  - LOSS OF CONSCIOUSNESS [None]
  - OEDEMA [None]
  - PYREXIA [None]
